FAERS Safety Report 7029223-2 (Version None)
Quarter: 2010Q3

REPORT INFORMATION
  Report Type: 
  Country: None (occurrence: None)
  Receive Date: 20100930
  Receipt Date: 20100924
  Transmission Date: 20110219
  Serious: Yes (Death, Hospitalization)
  Sender: FDA-Public Use
  Company Number: 2009AC000256

PATIENT
  Age: 70 Year
  Sex: Female
  Weight: 63.05 kg

DRUGS (15)
  1. DIGOXIN [Suspect]
     Indication: ATRIAL FIBRILLATION
     Dosage: 0.125 MG; QD; PO
     Route: 048
     Dates: start: 20030101
  2. MEBRAL [Concomitant]
  3. ZOCOR [Concomitant]
  4. DEPAKOTE [Concomitant]
  5. AMIODARONE HCL [Concomitant]
  6. LEVOXYL [Concomitant]
  7. FUROSEMIDE [Concomitant]
  8. NITROGLYCERIN [Concomitant]
  9. ENTERIC ASPIRIN [Concomitant]
  10. POTASSIUM ELIXIR [Concomitant]
  11. COZAAR [Concomitant]
  12. LASIX [Concomitant]
  13. LEVOTHYROXINE [Concomitant]
  14. NITROGLYCERIN [Concomitant]
  15. POTASSIUM [Concomitant]

REACTIONS (12)
  - ANHEDONIA [None]
  - ANXIETY [None]
  - BASAL CELL CARCINOMA [None]
  - DEEP VEIN THROMBOSIS [None]
  - DIARRHOEA [None]
  - ECONOMIC PROBLEM [None]
  - FATIGUE [None]
  - INJURY [None]
  - OEDEMA PERIPHERAL [None]
  - PAIN [None]
  - PAIN IN EXTREMITY [None]
  - PULMONARY EMBOLISM [None]
